FAERS Safety Report 18529076 (Version 2)
Quarter: 2021Q1

REPORT INFORMATION
  Report Type: Report from Study
  Country: CZ (occurrence: CZ)
  Receive Date: 20201120
  Receipt Date: 20210201
  Transmission Date: 20210419
  Serious: Yes (Hospitalization)
  Sender: FDA-Public Use
  Company Number: CZ-TAKEDA-2020TUS049662

PATIENT
  Age: 11 Year
  Sex: Female
  Weight: 33 kg

DRUGS (18)
  1. FLUTICASONE. [Concomitant]
     Active Substance: FLUTICASONE
     Indication: RHINITIS
     Dosage: 50 MICROGRAM
     Dates: start: 20160104
  2. ASCORUTIN [Concomitant]
     Active Substance: ASCORBIC ACID\RUTIN
     Indication: CONTUSION
     Route: 048
  3. HUMAN IMMUNOGLOBULIN; HYALURONIDASE [Suspect]
     Active Substance: HUMAN IMMUNOGLOBULIN G\HYALURONIDASE RECOMBINANT HUMAN
     Dosage: 25 MILLILITER
     Route: 058
     Dates: start: 20161122
  4. HERPESIN [ACICLOVIR] [Concomitant]
     Active Substance: ACYCLOVIR
     Indication: HERPES VIRUS INFECTION
  5. HUMAN IMMUNOGLOBULIN; HYALURONIDASE [Suspect]
     Active Substance: HUMAN IMMUNOGLOBULIN G\HYALURONIDASE RECOMBINANT HUMAN
     Dosage: 125 MILLILITER
     Route: 058
     Dates: start: 20190112
  6. TIAPRIDE [Concomitant]
     Active Substance: TIAPRIDE
     Indication: AUTISM SPECTRUM DISORDER
     Dosage: 25 MILLIGRAM, BID
     Route: 048
  7. VENTOLIN [Concomitant]
     Active Substance: ALBUTEROL SULFATE
     Indication: COUGH
     Route: 048
  8. MAGNESIUM LACTATE;PYRIDOXINE HYDROCHLORIDE [Concomitant]
     Active Substance: MAGNESIUM LACTATE\PYRIDOXINE HYDROCHLORIDE
     Indication: AUTISM SPECTRUM DISORDER
     Dosage: 470 MILLIGRAM, QD
     Route: 048
  9. PARALEN [PARACETAMOL] [Concomitant]
     Indication: DENTAL CARE
     Dosage: 500 MILLIGRAM, BID
     Route: 048
     Dates: start: 20190208, end: 20190214
  10. RINGER [CALCIUM CHLORIDE DIHYDRATE;MAGNESIUM CHLORIDE;POTASSIUM CHLORI [Concomitant]
     Indication: FLUID REPLACEMENT
  11. HUMAN IMMUNOGLOBULIN; HYALURONIDASE [Suspect]
     Active Substance: HUMAN IMMUNOGLOBULIN G\HYALURONIDASE RECOMBINANT HUMAN
     Indication: HYPOGAMMAGLOBULINAEMIA
     Dosage: 125 MILLILITER
     Route: 058
     Dates: start: 20180627, end: 20180926
  12. COMBAIR [BECLOMETASONE DIPROPIONATE;FORMOTEROL FUMARATE] [Concomitant]
     Active Substance: BECLOMETHASONE DIPROPIONATE\FORMOTEROL FUMARATE
     Indication: COUGH
     Dosage: 100 MICROGRAM, BID
     Route: 048
     Dates: start: 20180101
  13. NACL [Concomitant]
     Active Substance: SODIUM CHLORIDE
     Indication: INHALATION THERAPY
  14. HERPESIN [ACICLOVIR] [Concomitant]
     Active Substance: ACYCLOVIR
     Indication: PROPHYLAXIS
     Dosage: 200 MILLIGRAM, QD
     Route: 048
     Dates: start: 2016
  15. KLACID [CLARITHROMYCIN] [Concomitant]
     Active Substance: CLARITHROMYCIN
     Indication: PNEUMONIA
     Dosage: UNK UNK, BID
     Route: 048
     Dates: start: 20190509, end: 20190516
  16. ZODAC [Concomitant]
     Active Substance: CETIRIZINE HYDROCHLORIDE
     Indication: PRURITUS
     Dosage: UNK
     Route: 048
     Dates: start: 20180627, end: 20180627
  17. BISEPTOL [Concomitant]
     Active Substance: SULFAMETHOXAZOLE\TRIMETHOPRIM
     Indication: ACTIVATED PI3 KINASE DELTA SYNDROME
     Dosage: 480 MILLIGRAM, QD
     Route: 048
     Dates: start: 20090101
  18. SINGULAIR [Concomitant]
     Active Substance: MONTELUKAST SODIUM
     Indication: COUGH
     Dosage: 5 MILLIGRAM, QD
     Route: 048

REACTIONS (1)
  - Dental care [Recovered/Resolved]

NARRATIVE: CASE EVENT DATE: 20190207
